FAERS Safety Report 9411971 (Version 2)
Quarter: 2013Q2

REPORT INFORMATION
  Report Type: Spontaneous
  Country: US (occurrence: None)
  Receive Date: 20130424
  Receipt Date: 20130501
  Transmission Date: 20140414
  Serious: Yes (Hospitalization)
  Sender: FDA-Public Use
  Company Number: UTC-031731

PATIENT
  Age: 67 Year
  Sex: Female
  Weight: 67.3 kg

DRUGS (3)
  1. TYVASO [Suspect]
     Indication: COR PULMONALE CHRONIC
     Dosage: 54 MCG, 4 IN 1 D
     Route: 055
     Dates: start: 20130313, end: 20130409
  2. COUMADIN (WARFARIN SODIUM) [Concomitant]
  3. TRACLEER (BOSENTAN) [Concomitant]

REACTIONS (5)
  - Dyspnoea [None]
  - Oxygen saturation decreased [None]
  - Exercise tolerance decreased [None]
  - Dizziness [None]
  - Pallor [None]
